FAERS Safety Report 25505394 (Version 1)
Quarter: 2025Q3

REPORT INFORMATION
  Report Type: Spontaneous
  Country: US (occurrence: US)
  Receive Date: 20250702
  Receipt Date: 20250702
  Transmission Date: 20251021
  Serious: No
  Sender: CHATTEM
  Company Number: US-OPELLA-2025OHG018158

PATIENT
  Age: 80 Year
  Sex: Female

DRUGS (1)
  1. CHILDRENS ALLEGRA ALLERGY [Suspect]
     Active Substance: FEXOFENADINE HYDROCHLORIDE
     Indication: Product used for unknown indication
     Route: 048

REACTIONS (4)
  - Illness [Recovering/Resolving]
  - Vomiting [Recovering/Resolving]
  - Product odour abnormal [Unknown]
  - Product taste abnormal [Unknown]
